FAERS Safety Report 11531985 (Version 3)
Quarter: 2016Q3

REPORT INFORMATION
  Report Type: Spontaneous
  Country: IT (occurrence: IT)
  Receive Date: 20150921
  Receipt Date: 20160802
  Transmission Date: 20161109
  Serious: Yes (Death)
  Sender: FDA-Public Use
  Company Number: IT-JNJFOC-20150909819

PATIENT
  Age: 69 Year
  Sex: Male

DRUGS (5)
  1. RANITIDINE. [Suspect]
     Active Substance: RANITIDINE
     Indication: PREMEDICATION
     Dosage: ON THE MORNING OF THE EXAM RANITIDINE 300 MG EVERY 12 HOURS.
     Route: 065
  2. ULTRAVIST [Suspect]
     Active Substance: IOPROMIDE
     Indication: SCAN WITH CONTRAST
     Dosage: 66 ML TOTAL FOR TOTAL BODY CT SCAN FOR PROSTATIC ADENOCARCINOMA.
     Route: 042
     Dates: start: 20100503
  3. ULTRAVIST [Suspect]
     Active Substance: IOPROMIDE
     Indication: PROPHYLAXIS
     Dosage: 66 ML TOTAL FOR TOTAL BODY CT SCAN FOR PROSTATIC ADENOCARCINOMA.
     Route: 042
     Dates: start: 20100503
  4. CETIRIZINE [Suspect]
     Active Substance: CETIRIZINE HYDROCHLORIDE
     Indication: PREMEDICATION
     Dosage: ON THE MORNING OF THE EXAM CETIRIZINE EVERY 12 HOURS.
     Route: 065
  5. CETIRIZINE [Suspect]
     Active Substance: CETIRIZINE HYDROCHLORIDE
     Route: 065

REACTIONS (10)
  - Dyspnoea [Fatal]
  - Loss of consciousness [Fatal]
  - Off label use [Fatal]
  - Wrong patient received medication [Unknown]
  - Cardiac arrest [Fatal]
  - Product use issue [Fatal]
  - Malaise [Fatal]
  - Abdominal pain [Fatal]
  - Cardiac fibrillation [Fatal]
  - Anaphylactic shock [Fatal]

NARRATIVE: CASE EVENT DATE: 20100503
